FAERS Safety Report 14496626 (Version 1)
Quarter: 2018Q1

REPORT INFORMATION
  Report Type: Spontaneous
  Country: FR (occurrence: FR)
  Receive Date: 20180207
  Receipt Date: 20180207
  Transmission Date: 20180509
  Serious: Yes (Other)
  Sender: FDA-Public Use
  Company Number: PHHY2017FR200355

PATIENT
  Age: 79 Year
  Sex: Female
  Weight: 57 kg

DRUGS (26)
  1. ONDANSETRON [Suspect]
     Active Substance: ONDANSETRON
     Indication: PROPHYLAXIS OF NAUSEA AND VOMITING
     Dosage: 8 MG, ONCE/SINGLE (ONE IN ONE CYCLE)
     Route: 065
     Dates: start: 20161215, end: 20161215
  2. VINCRISTINE [Suspect]
     Active Substance: VINCRISTINE
     Indication: MANTLE CELL LYMPHOMA STAGE IV
     Dosage: 2 MG, ONCE
     Route: 042
     Dates: start: 20161215, end: 20161215
  3. POLARAMINE [Suspect]
     Active Substance: DEXCHLORPHENIRAMINE MALEATE
     Indication: DRUG TOXICITY PROPHYLAXIS
     Dosage: 1200 (UNITS UNKNOWN), ONCE
     Route: 042
     Dates: start: 20161215, end: 20161215
  4. MESNA. [Suspect]
     Active Substance: MESNA
     Indication: DRUG TOXICITY PROPHYLAXIS
     Dosage: 1200 MG, ONCE/SINGLE
     Route: 065
     Dates: start: 20161215, end: 20161215
  5. BACTRIM [Concomitant]
     Active Substance: SULFAMETHOXAZOLE\TRIMETHOPRIM
     Indication: PRODUCT USED FOR UNKNOWN INDICATION
     Dosage: 3 DF, QW (1 DF, TIW)
     Route: 048
     Dates: start: 20161215
  6. VINCRISTINE [Suspect]
     Active Substance: VINCRISTINE
     Indication: PROPHYLAXIS OF NAUSEA AND VOMITING
     Dosage: 8 MG, ONCE
     Route: 042
     Dates: start: 20161215, end: 20161215
  7. MABTHERA [Suspect]
     Active Substance: RITUXIMAB
     Indication: MANTLE CELL LYMPHOMA STAGE IV
     Dosage: 600 MG,ONE IN ONE CYCLE
     Route: 065
     Dates: start: 20161215, end: 20161215
  8. POLARAMINE [Suspect]
     Active Substance: DEXCHLORPHENIRAMINE MALEATE
     Indication: ALLERGY PROPHYLAXIS
     Dosage: 2 MG, ONCE
     Route: 042
     Dates: start: 20161215, end: 20161215
  9. GLICLAZIDE [Concomitant]
     Active Substance: GLICLAZIDE
     Dosage: 12 MG, QD
     Route: 048
  10. KARDEGIC [Concomitant]
     Active Substance: ASPIRIN DL-LYSINE
     Indication: PRODUCT USED FOR UNKNOWN INDICATION
     Dosage: 160 MG, QD
     Route: 048
  11. GLICLAZIDE [Concomitant]
     Active Substance: GLICLAZIDE
     Indication: PRODUCT USED FOR UNKNOWN INDICATION
     Dosage: 20 MG, QD
     Route: 048
  12. GLICLAZIDE [Concomitant]
     Active Substance: GLICLAZIDE
     Dosage: 500 MG, BID (1 DAY)
     Route: 048
  13. HYDROCHLOROTHIAZIDE. [Concomitant]
     Active Substance: HYDROCHLOROTHIAZIDE
     Indication: PRODUCT USED FOR UNKNOWN INDICATION
     Dosage: 12 MG, QD
     Route: 048
  14. DOXORUBICIN TEVA [Suspect]
     Active Substance: DOXORUBICIN
     Indication: MANTLE CELL LYMPHOMA STAGE IV
     Dosage: 84 MG, ONCE
     Route: 065
     Dates: start: 20161215, end: 20161215
  15. POLARAMINE [Suspect]
     Active Substance: DEXCHLORPHENIRAMINE MALEATE
     Indication: PROPHYLAXIS OF NAUSEA AND VOMITING
     Dosage: 8 MG, ONCE/SINGLE
     Route: 042
     Dates: start: 20161215, end: 20161215
  16. VALACICLOVIR HYDROCHLORIDE [Concomitant]
     Active Substance: VALACYCLOVIR HYDROCHLORIDE
     Indication: PRODUCT USED FOR UNKNOWN INDICATION
     Dosage: 500 MG, QD
     Route: 048
     Dates: start: 20161215
  17. SPECIAFOLDINE [Concomitant]
     Active Substance: FOLIC ACID
     Indication: PRODUCT USED FOR UNKNOWN INDICATION
     Dosage: 10 MG, QD
     Route: 048
     Dates: start: 20161215
  18. GLICLAZIDE [Concomitant]
     Active Substance: GLICLAZIDE
     Dosage: 500 MG, QD
     Route: 048
     Dates: start: 20161215
  19. GLICLAZIDE [Concomitant]
     Active Substance: GLICLAZIDE
     Dosage: 160 MG, QD
     Route: 048
  20. PRAVASTATIN SODIUM. [Concomitant]
     Active Substance: PRAVASTATIN SODIUM
     Indication: PRODUCT USED FOR UNKNOWN INDICATION
     Dosage: 20 MG, QD
     Route: 048
  21. POLARAMINE [Suspect]
     Active Substance: DEXCHLORPHENIRAMINE MALEATE
     Indication: MANTLE CELL LYMPHOMA STAGE IV
     Dosage: 10 MG, ONCE/SINGLE
     Route: 042
     Dates: start: 20161215, end: 20161215
  22. ENDOXAN [Suspect]
     Active Substance: CYCLOPHOSPHAMIDE
     Indication: MANTLE CELL LYMPHOMA STAGE IV
     Dosage: 1260 MG, ONCE
     Route: 065
     Dates: start: 20161215, end: 20161215
  23. METFORMIN [Concomitant]
     Active Substance: METFORMIN HYDROCHLORIDE
     Indication: PRODUCT USED FOR UNKNOWN INDICATION
     Dosage: 1000 MG, QD (500 MG, BID)
     Route: 048
  24. VINCRISTINE [Suspect]
     Active Substance: VINCRISTINE
     Indication: DRUG TOXICITY PROPHYLAXIS
     Dosage: 1200 MG, ONCE
     Route: 042
     Dates: start: 20161215, end: 20161215
  25. GLICLAZIDE [Concomitant]
     Active Substance: GLICLAZIDE
     Dosage: 60 MG, QD
     Route: 048
  26. VALSARTAN. [Concomitant]
     Active Substance: VALSARTAN
     Indication: PRODUCT USED FOR UNKNOWN INDICATION
     Dosage: 160 MG, QD
     Route: 048

REACTIONS (1)
  - Polyarthritis [Recovered/Resolved]

NARRATIVE: CASE EVENT DATE: 201612
